FAERS Safety Report 14878883 (Version 3)
Quarter: 2018Q3

REPORT INFORMATION
  Report Type: Spontaneous
  Country: US (occurrence: US)
  Receive Date: 20180511
  Receipt Date: 20180815
  Transmission Date: 20181010
  Serious: No
  Sender: FDA-Public Use
  Company Number: US-ASTRAZENECA-2018SE50070

PATIENT
  Sex: Female
  Weight: 63.5 kg

DRUGS (4)
  1. SYMBICORT [Suspect]
     Active Substance: BUDESONIDE\FORMOTEROL FUMARATE DIHYDRATE
     Indication: ASTHMA
     Dosage: 80/4.5 MCG TWO INHALATIONS TWICE A DAY
     Route: 055
     Dates: start: 201804
  2. SYMBICORT [Suspect]
     Active Substance: BUDESONIDE\FORMOTEROL FUMARATE DIHYDRATE
     Indication: ASTHMA
     Dosage: 80/4.5 MCG ONE PUFF ONCE A DAY
     Route: 055
  3. AMIODARONE [Concomitant]
     Active Substance: AMIODARONE
  4. SYMBICORT [Suspect]
     Active Substance: BUDESONIDE\FORMOTEROL FUMARATE DIHYDRATE
     Indication: ASTHMA
     Dosage: 80/4.5 MCG ONE PUFF TWICE A DAY
     Route: 055

REACTIONS (8)
  - Hypoaesthesia oral [Unknown]
  - Dysphonia [Unknown]
  - Intentional product misuse [Not Recovered/Not Resolved]
  - Cardiac disorder [Unknown]
  - Throat irritation [Unknown]
  - Dysgeusia [Not Recovered/Not Resolved]
  - Wrong technique in product usage process [Unknown]
  - Oral discomfort [Not Recovered/Not Resolved]
